FAERS Safety Report 24559739 (Version 3)
Quarter: 2024Q4

REPORT INFORMATION
  Report Type: Report from Study
  Country: US (occurrence: US)
  Receive Date: 20241029
  Receipt Date: 20241205
  Transmission Date: 20250114
  Serious: Yes (Death, Life-Threatening, Hospitalization, Other)
  Sender: TAKEDA
  Company Number: US-TAKEDA-2023TUS108843

PATIENT
  Age: 81 Year
  Sex: Male

DRUGS (62)
  1. IXAZOMIB [Suspect]
     Active Substance: IXAZOMIB
     Indication: Plasma cell myeloma
     Dosage: 3 MILLIGRAM, 1/WEEK
     Dates: start: 20201201
  2. IXAZOMIB [Suspect]
     Active Substance: IXAZOMIB
     Dosage: 3 MILLIGRAM
  3. IXAZOMIB [Suspect]
     Active Substance: IXAZOMIB
     Dosage: 3 MILLIGRAM
  4. IXAZOMIB [Suspect]
     Active Substance: IXAZOMIB
     Dosage: 3 MILLIGRAM
  5. IXAZOMIB [Suspect]
     Active Substance: IXAZOMIB
     Dosage: 3 MILLIGRAM
  6. IXAZOMIB [Suspect]
     Active Substance: IXAZOMIB
     Dosage: 3 MILLIGRAM
  7. IXAZOMIB [Suspect]
     Active Substance: IXAZOMIB
     Dosage: 3 MILLIGRAM
  8. TOPROL XL [Concomitant]
     Active Substance: METOPROLOL SUCCINATE
     Dosage: 50 MILLIGRAM
  9. CALCITRIOL [Concomitant]
     Active Substance: CALCITRIOL
     Dosage: 0.5 MICROGRAM
  10. CALCITRIOL [Concomitant]
     Active Substance: CALCITRIOL
     Dosage: UNK
  11. GABAPENTIN [Concomitant]
     Active Substance: GABAPENTIN
     Dosage: 300 MILLIGRAM
  12. GABAPENTIN [Concomitant]
     Active Substance: GABAPENTIN
     Dosage: UNK
  13. AMLODIPINE BESYLATE [Concomitant]
     Active Substance: AMLODIPINE BESYLATE
     Dosage: 10 MILLIGRAM
  14. AMLODIPINE BESYLATE [Concomitant]
     Active Substance: AMLODIPINE BESYLATE
     Dosage: 5 MILLIGRAM
  15. AMLODIPINE BESYLATE [Concomitant]
     Active Substance: AMLODIPINE BESYLATE
     Dosage: UNK
  16. ACYCLOVIR [Concomitant]
     Active Substance: ACYCLOVIR
     Dosage: 400 MILLIGRAM
  17. PAMIDRONATE DISODIUM [Concomitant]
     Active Substance: PAMIDRONATE DISODIUM
     Dosage: 30 MILLIGRAM
  18. DARZALEX [Concomitant]
     Active Substance: DARATUMUMAB
     Dosage: 100 MILLIGRAM
  19. DEXAMETHASONE [Concomitant]
     Active Substance: DEXAMETHASONE
     Dosage: 6 MILLIGRAM
  20. DEXAMETHASONE [Concomitant]
     Active Substance: DEXAMETHASONE
     Dosage: 4 MILLIGRAM
  21. DEXAMETHASONE [Concomitant]
     Active Substance: DEXAMETHASONE
     Dosage: UNK
  22. VITAMIN D [Concomitant]
     Active Substance: VITAMIN D NOS
     Dosage: 10 MICROGRAM
  23. TYLENOL EXTRA STRENGTH [Concomitant]
     Active Substance: ACETAMINOPHEN
     Dosage: UNK
  24. COENZYME Q10 [Concomitant]
     Active Substance: DIETARY SUPPLEMENT\UBIDECARENONE
     Dosage: 100 MILLIGRAM
  25. MAGNESIUM [Concomitant]
     Active Substance: MAGNESIUM
     Dosage: 250 MILLIGRAM
  26. POTASSIUM PHOSPHATE, MONOBASIC [Concomitant]
     Active Substance: POTASSIUM PHOSPHATE, MONOBASIC
     Dosage: 500 MILLIGRAM
  27. K PHOS NEUTRAL [Concomitant]
     Active Substance: POTASSIUM PHOSPHATE, MONOBASIC\SODIUM PHOSPHATE, DIBASIC, ANHYDROUS\SODIUM PHOSPHATE, MONOBASIC, MON
     Dosage: 250 MILLIGRAM
  28. EVUSHELD [Concomitant]
     Active Substance: CILGAVIMAB\TIXAGEVIMAB
     Dosage: 150-150 MILLIGRAM
  29. TEMAZEPAM [Concomitant]
     Active Substance: TEMAZEPAM
     Dosage: 15 MILLIGRAM
  30. ELIGARD [Concomitant]
     Active Substance: LEUPROLIDE ACETATE
     Dosage: 22.5 MILLIGRAM
  31. DOXAZOSIN MESYLATE [Concomitant]
     Active Substance: DOXAZOSIN MESYLATE
     Dosage: 1 MILLIGRAM
  32. DOXAZOSIN MESYLATE [Concomitant]
     Active Substance: DOXAZOSIN MESYLATE
     Dosage: 2 MILLIGRAM
  33. DOXAZOSIN MESYLATE [Concomitant]
     Active Substance: DOXAZOSIN MESYLATE
     Dosage: UNK
  34. ASCORBIC ACID\IRON [Concomitant]
     Active Substance: ASCORBIC ACID\IRON
     Dosage: UNK
  35. ASCORBIC ACID\IRON [Concomitant]
     Active Substance: ASCORBIC ACID\IRON
     Dosage: 100-250 MILLIGRAM
  36. NIACIN [Concomitant]
     Active Substance: NIACIN
     Dosage: UNK
  37. NIACIN [Concomitant]
     Active Substance: NIACIN
     Dosage: 100 MILLIGRAM
  38. SUDAFED [Concomitant]
     Active Substance: PSEUDOEPHEDRINE HYDROCHLORIDE
     Dosage: UNK
  39. OMEPRAZOLE [Concomitant]
     Active Substance: OMEPRAZOLE
     Dosage: 20 MILLIGRAM
  40. OMEPRAZOLE [Concomitant]
     Active Substance: OMEPRAZOLE
     Dosage: UNK
  41. METOPROLOL SUCCINATE [Concomitant]
     Active Substance: METOPROLOL SUCCINATE
     Dosage: UNK
  42. LOSARTAN POTASSIUM [Concomitant]
     Active Substance: LOSARTAN POTASSIUM
     Dosage: 25 MILLIGRAM
  43. LOSARTAN POTASSIUM [Concomitant]
     Active Substance: LOSARTAN POTASSIUM
     Dosage: UNK
  44. POTASSIUM [Concomitant]
     Active Substance: POTASSIUM
     Dosage: 99 MILLIGRAM
  45. POTASSIUM [Concomitant]
     Active Substance: POTASSIUM
     Dosage: UNK
  46. IMODIUM [Concomitant]
     Active Substance: LOPERAMIDE HYDROCHLORIDE
     Dosage: 2 MILLIGRAM
  47. IMODIUM [Concomitant]
     Active Substance: LOPERAMIDE HYDROCHLORIDE
     Dosage: UNK
  48. FAMOTIDINE [Concomitant]
     Active Substance: FAMOTIDINE
     Dosage: 10 MILLIGRAM
  49. SODIUM CHLORIDE [Concomitant]
     Active Substance: SODIUM CHLORIDE
     Dosage: 0.65 PERCENT
  50. XARELTO [Concomitant]
     Active Substance: RIVAROXABAN
     Dosage: 20 MILLIGRAM
  51. XARELTO [Concomitant]
     Active Substance: RIVAROXABAN
     Dosage: 15 MILLIGRAM
  52. XARELTO [Concomitant]
     Active Substance: RIVAROXABAN
     Dosage: UNK
  53. PREDNISONE [Concomitant]
     Active Substance: PREDNISONE
     Dosage: 10 MILLIGRAM
  54. PREDNISONE [Concomitant]
     Active Substance: PREDNISONE
     Dosage: UNK
  55. BICALUTAMIDE [Concomitant]
     Active Substance: BICALUTAMIDE
     Dosage: 50 MILLIGRAM
  56. LUPRON DEPOT [Concomitant]
     Active Substance: LEUPROLIDE ACETATE
     Dosage: 30 MILLIGRAM
  57. NIVESTYM [Concomitant]
     Active Substance: FILGRASTIM-AAFI
     Dosage: UNK
  58. HYDROCORTISONE [Concomitant]
     Active Substance: HYDROCORTISONE
     Dosage: 20 MILLIGRAM
  59. REVLIMID [Concomitant]
     Active Substance: LENALIDOMIDE
     Dosage: UNK
  60. Cholecalciferol cristers [Concomitant]
     Dosage: UNK
  61. K PHOS ORIGINAL [Concomitant]
     Active Substance: POTASSIUM PHOSPHATE, MONOBASIC
     Dosage: UNK
  62. POMALYST [Concomitant]
     Active Substance: POMALIDOMIDE
     Dosage: UNK

REACTIONS (16)
  - Death [Fatal]
  - Cerebral haemorrhage [Not Recovered/Not Resolved]
  - Renal failure [Not Recovered/Not Resolved]
  - Hepatic failure [Not Recovered/Not Resolved]
  - Loss of consciousness [Unknown]
  - Oxygen saturation decreased [Unknown]
  - Blood creatinine increased [Unknown]
  - Humerus fracture [Not Recovered/Not Resolved]
  - Rib fracture [Not Recovered/Not Resolved]
  - Joint dislocation [Not Recovered/Not Resolved]
  - Upper limb fracture [Not Recovered/Not Resolved]
  - Fall [Not Recovered/Not Resolved]
  - Gingivitis [Unknown]
  - Oral infection [Unknown]
  - Sinusitis [Not Recovered/Not Resolved]
  - Dizziness [Unknown]

NARRATIVE: CASE EVENT DATE: 20240607
